FAERS Safety Report 19381637 (Version 2)
Quarter: 2021Q2

REPORT INFORMATION
  Report Type: Spontaneous
  Country: US (occurrence: US)
  Receive Date: 20210607
  Receipt Date: 20210608
  Transmission Date: 20210717
  Serious: No
  Sender: FDA-Public Use
  Company Number: US-SA-2021SA174609

PATIENT
  Age: 47 Year
  Sex: Male

DRUGS (1)
  1. LANTUS [Suspect]
     Active Substance: INSULIN GLARGINE
     Indication: TYPE 2 DIABETES MELLITUS
     Dosage: 50 IU, QD
     Route: 065

REACTIONS (4)
  - Device operational issue [Not Recovered/Not Resolved]
  - Somnolence [Unknown]
  - Drug dose omission by device [Not Recovered/Not Resolved]
  - Blood glucose decreased [Not Recovered/Not Resolved]
